FAERS Safety Report 20574160 (Version 7)
Quarter: 2025Q1

REPORT INFORMATION
  Report Type: Spontaneous
  Country: US (occurrence: US)
  Receive Date: 20220309
  Receipt Date: 20250108
  Transmission Date: 20250408
  Serious: Yes (Other)
  Sender: PFIZER
  Company Number: US-PFIZER INC-202200322821

PATIENT
  Age: 73 Year
  Sex: Male

DRUGS (1)
  1. XELJANZ XR [Suspect]
     Active Substance: TOFACITINIB CITRATE
     Dosage: 11 MG, 1X/DAY
     Route: 048

REACTIONS (7)
  - Rheumatoid arthritis [Unknown]
  - Knee arthroplasty [Unknown]
  - Arthralgia [Unknown]
  - Pain [Unknown]
  - Gastrointestinal disorder [Unknown]
  - Liver function test abnormal [Unknown]
  - Osteoarthritis [Unknown]
